FAERS Safety Report 11253267 (Version 1)
Quarter: 2015Q3

REPORT INFORMATION
  Report Type: Spontaneous
  Country: FR (occurrence: None)
  Receive Date: 20150707
  Receipt Date: 20150707
  Transmission Date: 20151125
  Serious: Yes (Other)
  Sender: FDA-Public Use
  Company Number: 2015FR0369

PATIENT
  Age: 43 Year
  Sex: Female

DRUGS (1)
  1. KINERET [Suspect]
     Active Substance: ANAKINRA
     Indication: AMYLOIDOSIS
     Route: 058
     Dates: start: 20150217

REACTIONS (2)
  - Headache [None]
  - Cough [None]

NARRATIVE: CASE EVENT DATE: 201503
